FAERS Safety Report 13168230 (Version 2)
Quarter: 2017Q1

REPORT INFORMATION
  Report Type: Spontaneous
  Country: US (occurrence: US)
  Receive Date: 20170131
  Receipt Date: 20170301
  Transmission Date: 20170428
  Serious: No
  Sender: FDA-Public Use
  Company Number: US-PFIZER INC-2016392307

PATIENT
  Age: 62 Year
  Sex: Female
  Weight: 72.57 kg

DRUGS (14)
  1. LYRICA [Suspect]
     Active Substance: PREGABALIN
     Indication: INTERVERTEBRAL DISC DISORDER
     Dosage: 75 MG, TWICE A DAY (TAKE 1 CAPSULE BY MOUTH TWICE DAILY FOR THREE DAYS)
     Route: 048
     Dates: end: 20160806
  2. LYRICA [Suspect]
     Active Substance: PREGABALIN
     Dosage: 100 MG, TWICE A DAY (TWICE FOR THREE DAYS)
  3. LYRICA [Suspect]
     Active Substance: PREGABALIN
     Dosage: 300 MG, TWICE A DAY
  4. LYRICA [Suspect]
     Active Substance: PREGABALIN
     Dosage: 200 MG, TWICE A DAY (FOR THE NEXT THREE DAYS)
     Route: 048
     Dates: start: 20160729
  5. LYRICA [Suspect]
     Active Substance: PREGABALIN
     Indication: RADICULOPATHY
     Dosage: 75 MG, THREE TIMES A DAY (TAKE 1 CAPSULE BY MOUTH IN THE AM AND 2 AT BEDTIME FOR THREE DAYS)
     Route: 048
     Dates: end: 20160806
  6. VOLTAREN [Concomitant]
     Active Substance: DICLOFENAC SODIUM
     Dosage: 2 G, FOUR TIMES A DAY (APPLY 2G BY TOPICAL ROUTE 4 TIMES EVERY DAY)
     Route: 061
     Dates: start: 20160729, end: 20161026
  7. LEVOTHYROXINE. [Concomitant]
     Active Substance: LEVOTHYROXINE
     Indication: THYROID DISORDER
     Dosage: 25 MG, ONCE A DAY
  8. SERTRALINE [Concomitant]
     Active Substance: SERTRALINE HYDROCHLORIDE
     Indication: DEPRESSION
     Dosage: 100 MG, ONCE A DAY
  9. WELLBUTRIN [Concomitant]
     Active Substance: BUPROPION HYDROCHLORIDE
     Dosage: 75 MG, DAILY (1 TABLET BY ORAL ROUTE EVERY DAY)
     Route: 048
  10. RANITIDINE. [Concomitant]
     Active Substance: RANITIDINE
     Indication: GASTROOESOPHAGEAL REFLUX DISEASE
     Dosage: 150  MG, DAILY (TAKE 1 CAPSULE BY ORAL ROUTE EVERY DAY)
  11. DICLOFENAC SODIUM. [Concomitant]
     Active Substance: DICLOFENAC SODIUM
     Indication: PERIPHERAL SWELLING
     Dosage: 75 MG, AS NEEDED (TAKE 1 TABLET BY ORAL ROUTE 2 TIMES EVERY DAY AS NEEDED)
     Route: 048
  12. LYRICA [Suspect]
     Active Substance: PREGABALIN
     Indication: NERVE INJURY
     Dosage: 75 MG, ONCE A DAY (TAKE 1 CAPSULE BY ORAL ROUTE AT BEDTIME FOR THREE DAYS)
     Route: 048
     Dates: start: 20160729, end: 20160806
  13. LYRICA [Suspect]
     Active Substance: PREGABALIN
     Indication: PAIN
     Dosage: 150 MG, TWICE A DAY (TAKE 1 CAPSULE BY ORAL ROUTE 2 TIMES EVERY DAY)
     Route: 048
     Dates: start: 20160807
  14. RANITIDINE. [Concomitant]
     Active Substance: RANITIDINE
     Dosage: 150 MG, TWICE A DAY

REACTIONS (9)
  - Feeling cold [Recovering/Resolving]
  - Vomiting [Recovered/Resolved]
  - Pain [Unknown]
  - Drug ineffective [Unknown]
  - Cold sweat [Recovering/Resolving]
  - Eating disorder [Recovering/Resolving]
  - Withdrawal syndrome [Unknown]
  - Restlessness [Recovering/Resolving]
  - Hyperhidrosis [Recovering/Resolving]

NARRATIVE: CASE EVENT DATE: 20170121
